FAERS Safety Report 13168839 (Version 1)
Quarter: 2017Q1

REPORT INFORMATION
  Report Type: Spontaneous
  Country: FR (occurrence: FR)
  Receive Date: 20170131
  Receipt Date: 20170131
  Transmission Date: 20170428
  Serious: Yes (Hospitalization, Other)
  Sender: FDA-Public Use
  Company Number: FR-BRISTOL-MYERS SQUIBB COMPANY-BMS-2017-004640

PATIENT
  Sex: Female

DRUGS (4)
  1. PREVISCAN                          /00789001/ [Suspect]
     Active Substance: FLUINDIONE
     Indication: PHLEBITIS
     Route: 065
  2. INSULIN [Concomitant]
     Active Substance: INSULIN NOS
     Indication: DIABETES MELLITUS
     Route: 065
  3. COUMADINE [Suspect]
     Active Substance: WARFARIN SODIUM
     Indication: PHLEBITIS
     Route: 065
  4. INNOHEP [Suspect]
     Active Substance: TINZAPARIN SODIUM
     Indication: PHLEBITIS
     Dosage: UNK
     Route: 065
     Dates: end: 201510

REACTIONS (5)
  - Diabetes mellitus [Unknown]
  - Dialysis [Unknown]
  - Chromaturia [Unknown]
  - Arthralgia [Unknown]
  - Acute kidney injury [Unknown]
